FAERS Safety Report 25665694 (Version 1)
Quarter: 2025Q3

REPORT INFORMATION
  Report Type: Spontaneous
  Country: JP (occurrence: JP)
  Receive Date: 20250811
  Receipt Date: 20250811
  Transmission Date: 20251021
  Serious: Yes (Death, Other)
  Sender: AMGEN
  Company Number: JP-AMGEN-JPNSP2025156070

PATIENT
  Age: 66 Year
  Sex: Male

DRUGS (2)
  1. BEVACIZUMAB [Suspect]
     Active Substance: BEVACIZUMAB
     Indication: Colorectal adenocarcinoma
     Dosage: 5 MILLIGRAM/KILOGRAM, Q2WK, 10 CYCLES
     Route: 040
  2. FLUOROURACIL\IRINOTECAN\LEUCOVORIN\OXALIPLATIN [Concomitant]
     Active Substance: FLUOROURACIL\IRINOTECAN\LEUCOVORIN\OXALIPLATIN

REACTIONS (6)
  - Malignant ascites [Fatal]
  - Malignant pleural effusion [Fatal]
  - Intestinal obstruction [Unknown]
  - Jaundice cholestatic [Unknown]
  - Fatigue [Unknown]
  - Hepatic function abnormal [Unknown]
